FAERS Safety Report 17629262 (Version 1)
Quarter: 2020Q2

REPORT INFORMATION
  Report Type: Spontaneous
  Country: JP (occurrence: JP)
  Receive Date: 20200406
  Receipt Date: 20200406
  Transmission Date: 20200713
  Serious: Yes (Hospitalization, Other)
  Sender: FDA-Public Use
  Company Number: JP-SUN PHARMACEUTICAL INDUSTRIES LTD-2020RR-242816

PATIENT
  Sex: Male

DRUGS (4)
  1. PREDNISOLONE. [Suspect]
     Active Substance: PREDNISOLONE
     Indication: AMYLOIDOSIS
     Dosage: UNK
     Route: 065
  2. MELPHALAN. [Suspect]
     Active Substance: MELPHALAN
     Indication: AMYLOIDOSIS
     Dosage: 200 MG/M2
     Route: 065
  3. DEXAMETHASONE. [Suspect]
     Active Substance: DEXAMETHASONE
     Indication: AMYLOIDOSIS
     Route: 065
  4. THALIDOMIDE [Suspect]
     Active Substance: THALIDOMIDE
     Indication: AMYLOIDOSIS
     Route: 048

REACTIONS (4)
  - Therapy partial responder [Unknown]
  - Progressive multifocal leukoencephalopathy [Unknown]
  - Lymphopenia [Unknown]
  - Bone marrow failure [Unknown]
